FAERS Safety Report 10080249 (Version 1)
Quarter: 2014Q2

REPORT INFORMATION
  Report Type: Spontaneous
  Country: US (occurrence: US)
  Receive Date: 20140415
  Receipt Date: 20140415
  Transmission Date: 20141212
  Serious: No
  Sender: FDA-Public Use
  Company Number: US-BAXTER-2014BAX018460

PATIENT
  Age: 29 Year
  Sex: Female

DRUGS (7)
  1. CEFAZOLIN INJECTION [Suspect]
     Indication: INFECTION PROPHYLAXIS
     Route: 042
  2. LIDOCAINE [Suspect]
     Indication: ANAESTHESIA
     Route: 065
  3. HYPERBARIC BUPIVACAINE [Suspect]
     Indication: ANAESTHESIA
     Route: 008
  4. FENTANYL [Suspect]
     Indication: ANAESTHESIA
     Route: 008
  5. MORPHINE [Suspect]
     Indication: PAIN
     Route: 008
  6. MORPHINE [Suspect]
     Route: 065
  7. MEPERIDINE [Suspect]
     Indication: ANALGESIC THERAPY
     Route: 030

REACTIONS (2)
  - Exposure during pregnancy [Recovered/Resolved]
  - No adverse event [Recovered/Resolved]
